FAERS Safety Report 7030194-3 (Version None)
Quarter: 2010Q4

REPORT INFORMATION
  Report Type: 
  Country: None (occurrence: None)
  Receive Date: 20101006
  Receipt Date: 20100929
  Transmission Date: 20110411
  Serious: Yes (Hospitalization)
  Sender: FDA-Public Use
  Company Number: JP-BAYER-201011552BYL

PATIENT
  Age: 80 Year
  Sex: Male

DRUGS (7)
  1. NEXAVAR [Suspect]
     Indication: HEPATIC NEOPLASM MALIGNANT
     Dosage: UNIT DOSE: 200 MG
     Route: 048
     Dates: start: 20100317, end: 20100618
  2. URSO 250 [Concomitant]
     Dosage: UNIT DOSE: 100 MG
     Route: 048
  3. GASMOTIN [Concomitant]
     Route: 048
  4. PERINDOPRIL ERBUMINE [Concomitant]
     Dosage: UNIT DOSE: 4 MG
     Route: 048
  5. DOXAZOSIN MESYLATE [Concomitant]
     Dosage: UNIT DOSE: 2 MG
     Route: 048
  6. FAMOTIDINE [Concomitant]
     Dosage: UNIT DOSE: 20 MG
     Route: 048
  7. MUCOSTA [Concomitant]
     Dosage: UNIT DOSE: 100 MG
     Route: 048

REACTIONS (2)
  - ASCITES [None]
  - DYSPHONIA [None]
